FAERS Safety Report 6605226-4 (Version None)
Quarter: 2010Q1

REPORT INFORMATION
  Report Type: 
  Country: None (occurrence: None)
  Receive Date: 20100226
  Receipt Date: 20100215
  Transmission Date: 20100710
  Serious: Yes (Other)
  Sender: FDA-Public Use
  Company Number: NL-PFIZER INC-2009312950

PATIENT
  Sex: Male

DRUGS (12)
  1. VFEND [Suspect]
     Indication: CEREBRAL ASPERGILLOSIS
     Dosage: UNK
     Route: 042
     Dates: start: 20070901
  2. VFEND [Suspect]
     Dosage: UNK
     Dates: start: 20071201, end: 20080401
  3. VFEND [Suspect]
     Dosage: 400 MG, 3X/DAY
     Dates: start: 20080401
  4. VFEND [Suspect]
     Dosage: 600 MG, 2X/DAY
     Route: 042
     Dates: start: 20081009
  5. IMATINIB [Concomitant]
     Indication: CHRONIC MYELOID LEUKAEMIA
     Dosage: 300 MG, 1X/DAY
     Route: 048
     Dates: end: 20080601
  6. IMATINIB [Concomitant]
     Dosage: 400 MG, UNK
  7. FENTANYL [Concomitant]
  8. NORTRIPTYLINE [Concomitant]
  9. GABAPENTIN [Concomitant]
     Dosage: UNK
  10. TEMAZEPAM [Concomitant]
  11. DULOXETINE [Concomitant]
  12. INTERFERON GAMMA [Concomitant]

REACTIONS (1)
  - PERIPHERAL SENSORY NEUROPATHY [None]
